FAERS Safety Report 17896544 (Version 11)
Quarter: 2023Q1

REPORT INFORMATION
  Report Type: Report from Study
  Country: CO (occurrence: CO)
  Receive Date: 20200615
  Receipt Date: 20230213
  Transmission Date: 20230418
  Serious: Yes (Life-Threatening, Hospitalization, Other)
  Sender: FDA-Public Use
  Company Number: NVSC2020CO087927

PATIENT
  Age: 82 Year
  Sex: Female

DRUGS (10)
  1. MEKINIST [Suspect]
     Active Substance: TRAMETINIB DIMETHYL SULFOXIDE
     Indication: Metastatic malignant melanoma
     Dosage: 2 MG, QD (IN MORNING STARTED MORE THAN 2 YEARS AGO)
     Route: 048
     Dates: end: 202003
  2. MEKINIST [Suspect]
     Active Substance: TRAMETINIB DIMETHYL SULFOXIDE
     Dosage: 2 MG, QD (IN MORNING)
     Route: 048
  3. MEKINIST [Suspect]
     Active Substance: TRAMETINIB DIMETHYL SULFOXIDE
     Dosage: UNK UNK, QD
     Route: 048
  4. TAFINLAR [Suspect]
     Active Substance: DABRAFENIB MESYLATE
     Indication: Metastatic malignant melanoma
     Dosage: 75 MG (2 IN THE MORNING AND 2 IN THE AFTERNOON STARTED MORE THAN 2 YEARS AGO)
     Route: 048
     Dates: end: 202003
  5. TAFINLAR [Suspect]
     Active Substance: DABRAFENIB MESYLATE
     Dosage: 75 MG (2 IN THE MORNING AND 2 IN THE AFTERNOON)
     Route: 048
  6. TAFINLAR [Suspect]
     Active Substance: DABRAFENIB MESYLATE
     Dosage: UNK UNK, Q12H
     Route: 048
  7. PREGABALIN [Suspect]
     Active Substance: PREGABALIN
     Indication: Product used for unknown indication
     Dosage: UNK (FOR 30 DAYS)
     Route: 065
  8. DEXAMETHASONE [Suspect]
     Active Substance: DEXAMETHASONE
     Indication: Product used for unknown indication
     Dosage: UNK (FOR 30 DAYS)
     Route: 065
  9. LEVETIRACETAM [Suspect]
     Active Substance: LEVETIRACETAM
     Indication: Product used for unknown indication
     Dosage: UNK (FOR 30 DAYS)
     Route: 065
  10. METOCLOPRAMIDE [Concomitant]
     Active Substance: METOCLOPRAMIDE
     Indication: Vomiting
     Dosage: UNK (1 HOUR BEFOR EATING)
     Route: 048

REACTIONS (28)
  - Terminal state [Unknown]
  - Intracranial mass [Unknown]
  - Metastasis [Unknown]
  - Asthenia [Unknown]
  - Malaise [Unknown]
  - Blister [Unknown]
  - Cerebrovascular accident [Recovered/Resolved]
  - Loss of consciousness [Unknown]
  - Metastatic malignant melanoma [Unknown]
  - Malignant neoplasm progression [Unknown]
  - Metastases to bone [Recovered/Resolved]
  - Incontinence [Unknown]
  - Vitiligo [Unknown]
  - Pigmentation disorder [Unknown]
  - Acne [Unknown]
  - Immune system disorder [Unknown]
  - Pain [Unknown]
  - Feeling abnormal [Unknown]
  - Mobility decreased [Unknown]
  - Paraesthesia [Unknown]
  - Memory impairment [Unknown]
  - Illness [Unknown]
  - Influenza [Unknown]
  - Arthralgia [Unknown]
  - Chills [Unknown]
  - Dizziness [Unknown]
  - Pain in extremity [Unknown]
  - Product dose omission issue [Unknown]

NARRATIVE: CASE EVENT DATE: 20200101
